FAERS Safety Report 14947687 (Version 3)
Quarter: 2018Q2

REPORT INFORMATION
  Report Type: Spontaneous
  Country: US (occurrence: US)
  Receive Date: 20180529
  Receipt Date: 20180622
  Transmission Date: 20180711
  Serious: Yes (Hospitalization)
  Sender: FDA-Public Use
  Company Number: US-VIFOR (INTERNATIONAL) INC.-VIT-2018-04872

PATIENT
  Age: 70 Year
  Sex: Female

DRUGS (15)
  1. NORCO [Concomitant]
     Active Substance: ACETAMINOPHEN\HYDROCODONE BITARTRATE
  2. VELTASSA [Suspect]
     Active Substance: PATIROMER
     Indication: HYPERKALAEMIA
     Route: 048
     Dates: start: 20180503
  3. LEVOTHYROXINE SODIUM. [Concomitant]
     Active Substance: LEVOTHYROXINE SODIUM
  4. MAGNESIUM HYDROXIDE. [Concomitant]
     Active Substance: MAGNESIUM HYDROXIDE
  5. OMEPRAZOLE. [Concomitant]
     Active Substance: OMEPRAZOLE
  6. SUCRALFATE. [Concomitant]
     Active Substance: SUCRALFATE
  7. ASCORBIC ACID/BIOTIN/FOLIC ACID/THIAMINE/NICOTINIC ACID/PYRIDOXINE/CYANOCOBALAMIN/PANTOTHENIC ACID/R [Concomitant]
  8. AMLODIPINE BESILATE [Concomitant]
     Active Substance: AMLODIPINE BESYLATE
  9. FLUCONAZOLE. [Concomitant]
     Active Substance: FLUCONAZOLE
  10. LACTULOSE. [Concomitant]
     Active Substance: LACTULOSE
  11. PROCRIT [Concomitant]
     Active Substance: ERYTHROPOIETIN
  12. FOLIC ACID. [Concomitant]
     Active Substance: FOLIC ACID
  13. DULOXETINE HYDROCHLORIDE. [Concomitant]
     Active Substance: DULOXETINE HYDROCHLORIDE
  14. ACIDOPHILUS [Concomitant]
     Active Substance: LACTOBACILLUS ACIDOPHILUS
  15. MOVANTIK [Concomitant]
     Active Substance: NALOXEGOL OXALATE

REACTIONS (2)
  - Pain [Unknown]
  - Hospitalisation [Unknown]

NARRATIVE: CASE EVENT DATE: 20180505
